FAERS Safety Report 5951027-X (Version None)
Quarter: 2008Q4

REPORT INFORMATION
  Report Type: 
  Country: None (occurrence: None)
  Receive Date: 20081110
  Receipt Date: 20081029
  Transmission Date: 20090506
  Serious: Yes (Hospitalization, Other)
  Sender: FDA-Public Use
  Company Number: 2008-02638

PATIENT
  Age: 63 Year
  Sex: Female
  Weight: 65.5 kg

DRUGS (20)
  1. VELCADE [Suspect]
     Indication: MULTIPLE MYELOMA
     Dosage: 1 MG/M2,
     Dates: start: 20040714, end: 20050602
  2. DEXAMETHASONE TAB [Suspect]
     Indication: MULTIPLE MYELOMA
     Dosage: 40 MG,; 20 MG,
     Dates: start: 20041012, end: 20050603
  3. DEXAMETHASONE TAB [Suspect]
     Indication: MULTIPLE MYELOMA
     Dosage: 40 MG,; 20 MG,
     Dates: start: 20040717
  4. THALIDOMIDE [Suspect]
     Indication: MULTIPLE MYELOMA
     Dosage: 200 MG,; 100 MG,
     Dates: start: 20041012, end: 20050604
  5. THALIDOMIDE [Suspect]
     Indication: MULTIPLE MYELOMA
     Dosage: 200 MG,; 100 MG,
     Dates: start: 20040717
  6. CISPLATIN [Suspect]
     Indication: MULTIPLE MYELOMA
     Dosage: 10 MG/M2,; 7.5 MG/M2,
     Dates: end: 20050321
  7. CISPLATIN [Suspect]
     Indication: MULTIPLE MYELOMA
     Dosage: 10 MG/M2,; 7.5 MG/M2,
     Dates: start: 20040717
  8. DOXORUBICIN HCL [Suspect]
     Indication: MULTIPLE MYELOMA
     Dosage: 10 MG/M2,; 7.5 MG/M2,
     Dates: end: 20050321
  9. DOXORUBICIN HCL [Suspect]
     Indication: MULTIPLE MYELOMA
     Dosage: 10 MG/M2,; 7.5 MG/M2,
     Dates: start: 20040717
  10. CYCLOPHOSPHAMIDE [Suspect]
     Indication: MULTIPLE MYELOMA
     Dosage: 400 MG/M2,; 300 MG/M2,
     Dates: end: 20050321
  11. CYCLOPHOSPHAMIDE [Suspect]
     Indication: MULTIPLE MYELOMA
     Dosage: 400 MG/M2,; 300 MG/M2,
     Dates: start: 20040717
  12. ETOPOSIDE [Suspect]
     Indication: MULTIPLE MYELOMA
     Dosage: 40 MG/M2,; 30 MG/M2,
     Dates: end: 20050321
  13. ETOPOSIDE [Suspect]
     Indication: MULTIPLE MYELOMA
     Dosage: 40 MG/M2,; 30 MG/M2,
     Dates: start: 20040717
  14. MELPHALAN(MELPHALAN) VIAL [Suspect]
     Dosage: 200 MG/M2,
     Dates: start: 20040916, end: 20040916
  15. MELPHALAN(MELPHALAN) VIAL [Suspect]
     Dosage: 200 MG/M2,
     Dates: start: 20041121, end: 20041121
  16. LOVENOX [Concomitant]
  17. ACYCLOVIR [Concomitant]
  18. TEQUIN [Concomitant]
  19. DIFLUCAN [Concomitant]
  20. PROCRIT [Concomitant]

REACTIONS (9)
  - DIZZINESS [None]
  - DYSPNOEA [None]
  - FALL [None]
  - HEAD INJURY [None]
  - LOSS OF CONSCIOUSNESS [None]
  - STEM CELL TRANSPLANT [None]
  - SUPERIOR VENA CAVAL OCCLUSION [None]
  - SYNCOPE [None]
  - VENA CAVA THROMBOSIS [None]
